FAERS Safety Report 13910800 (Version 1)
Quarter: 2017Q3

REPORT INFORMATION
  Report Type: Spontaneous
  Country: FR (occurrence: FR)
  Receive Date: 20170828
  Receipt Date: 20170828
  Transmission Date: 20171127
  Serious: Yes (Hospitalization)
  Sender: FDA-Public Use
  Company Number: FR-SA-2017SA152875

PATIENT
  Age: 79 Year
  Sex: Female

DRUGS (2)
  1. RIFADINE [Suspect]
     Active Substance: RIFAMPIN
     Indication: OSTEITIS
     Route: 048
     Dates: start: 20140314, end: 20140318
  2. FUCIDINE [Suspect]
     Active Substance: FUSIDIC ACID
     Indication: OSTEITIS
     Route: 048
     Dates: start: 20140314, end: 20140318

REACTIONS (1)
  - Hepatitis cholestatic [Recovered/Resolved]

NARRATIVE: CASE EVENT DATE: 20140318
